FAERS Safety Report 8435704-7 (Version None)
Quarter: 2012Q2

REPORT INFORMATION
  Report Type: 
  Country: None (occurrence: None)
  Receive Date: 20120614
  Receipt Date: 20120605
  Transmission Date: 20120825
  Serious: Yes (Other)
  Sender: FDA-Public Use
  Company Number: CA-JNJFOC-20111208157

PATIENT
  Sex: Female
  Weight: 75 kg

DRUGS (9)
  1. REMICADE [Suspect]
     Indication: COLITIS ULCERATIVE
     Route: 042
  2. ADALAT CC [Concomitant]
  3. REMICADE [Suspect]
     Dosage: 29TH INFUSION
     Route: 042
     Dates: start: 20120605
  4. VSL3 [Concomitant]
  5. MESALAMINE [Concomitant]
  6. REMICADE [Suspect]
     Route: 042
     Dates: start: 20080116
  7. CORTENEMA [Concomitant]
  8. IMODIUM [Concomitant]
  9. DIOVAN [Concomitant]

REACTIONS (4)
  - LIP INJURY [None]
  - RIB FRACTURE [None]
  - RASH PRURITIC [None]
  - FALL [None]
